FAERS Safety Report 9805998 (Version 1)
Quarter: 2014Q1

REPORT INFORMATION
  Report Type: Spontaneous
  Country: US (occurrence: US)
  Receive Date: 20140109
  Receipt Date: 20140109
  Transmission Date: 20141002
  Serious: No
  Sender: FDA-Public Use
  Company Number: US-TEVA-454808USA

PATIENT
  Age: 30 Year
  Sex: Female
  Weight: 59.02 kg

DRUGS (7)
  1. PARAGARD 380A [Suspect]
     Indication: CONTRACEPTION
     Route: 015
     Dates: start: 20131204
  2. SPIRONOLACTONE [Concomitant]
     Indication: HORMONE LEVEL ABNORMAL
     Dosage: 50 MILLIGRAM DAILY;
     Route: 048
  3. MINIVELLE [Concomitant]
     Indication: HORMONE LEVEL ABNORMAL
  4. BUPROPRION [Concomitant]
     Indication: DEPRESSION
     Route: 048
  5. METFORMIN [Concomitant]
     Indication: BLOOD GLUCOSE FLUCTUATION
     Route: 048
  6. LIOTHYRININE [Concomitant]
     Indication: HYPOTHYROIDISM
     Route: 048
  7. SYNTHROID [Concomitant]
     Indication: HYPOTHYROIDISM
     Dosage: 50 MICROGRAM DAILY;
     Route: 048

REACTIONS (4)
  - Depression [Not Recovered/Not Resolved]
  - Lethargy [Not Recovered/Not Resolved]
  - Abdominal pain [Not Recovered/Not Resolved]
  - Metrorrhagia [Not Recovered/Not Resolved]
